FAERS Safety Report 5581750-0 (Version None)
Quarter: 2008Q1

REPORT INFORMATION
  Report Type: 
  Country: None (occurrence: None)
  Receive Date: 20080104
  Receipt Date: 20070723
  Transmission Date: 20080703
  Serious: Yes (Hospitalization, Other)
  Sender: FDA-Public Use
  Company Number: US-ASTRAZENECA-2005UW13294

PATIENT
  Sex: Female
  Weight: 95 kg

DRUGS (5)
  1. SEROQUEL [Suspect]
     Indication: DEPRESSION
     Route: 048
     Dates: start: 20020205, end: 20040514
  2. SEROQUEL [Suspect]
     Indication: BIPOLAR DISORDER
     Route: 048
     Dates: start: 20020205, end: 20040514
  3. RISPERDAL [Concomitant]
     Dates: start: 20040601, end: 20040701
  4. PAXIL [Concomitant]
     Dates: start: 20000101
  5. TEMAZEPAM [Concomitant]

REACTIONS (5)
  - BLOOD GLUCOSE ABNORMAL [None]
  - DIABETES MELLITUS [None]
  - GLAUCOMA [None]
  - HYSTERECTOMY [None]
  - WEIGHT INCREASED [None]
